FAERS Safety Report 5737224-7 (Version None)
Quarter: 2008Q2

REPORT INFORMATION
  Report Type: 
  Country: None (occurrence: None)
  Receive Date: 20080514
  Receipt Date: 20080507
  Transmission Date: 20081010
  Serious: Yes (Other)
  Sender: FDA-Public Use
  Company Number: PHEH2008US04466

PATIENT
  Age: 67 Year
  Sex: Male

DRUGS (10)
  1. ENTERIC ASPIRIN [Concomitant]
     Dosage: 325 MG, QD
  2. METOPROLOL TARTRATE [Concomitant]
     Dosage: 25 MG, QD
  3. OMEGA 3 FISH OIL [Concomitant]
     Dosage: 1000 MG, TID
  4. COMTAN [Suspect]
     Indication: PARKINSON'S DISEASE
     Dosage: 200 MG SIX TIMES DAILY
  5. PLAVIX [Concomitant]
     Dosage: 75 MG, QD
  6. AMANTADINE HCL [Concomitant]
     Dosage: 100 MG, TID
  7. MIRAPEX ^PHARMACIA + UPJOHN^ [Concomitant]
     Dosage: 1 MG SIX TIMES DAILY
  8. SINEMET CR [Concomitant]
     Dosage: 50/200MG SIX TIMES DAILY
  9. SINEMET [Concomitant]
     Dosage: 25/100MG SIX TIMES DAILY
  10. PARCOPA [Concomitant]
     Indication: MUSCLE SPASMS
     Dosage: 25/250MG AS NEEDED

REACTIONS (2)
  - CARDIAC DISORDER [None]
  - MYOCARDIAL INFARCTION [None]
